FAERS Safety Report 21964744 (Version 2)
Quarter: 2023Q1

REPORT INFORMATION
  Report Type: Spontaneous
  Country: US (occurrence: US)
  Receive Date: 20230207
  Receipt Date: 20230210
  Transmission Date: 20230418
  Serious: Yes (Hospitalization, Congenital Anomaly)
  Sender: FDA-Public Use
  Company Number: US-ALKERMES INC.-ALK-2023-000415

PATIENT
  Age: 38 Week
  Sex: Female
  Weight: 3.29 kg

DRUGS (5)
  1. VIVITROL [Suspect]
     Active Substance: NALTREXONE
     Indication: Maternal exposure timing unspecified
     Dosage: 380 MILLIGRAM, QMO
     Route: 064
     Dates: start: 20220110, end: 20220110
  2. VIVITROL [Suspect]
     Active Substance: NALTREXONE
     Dosage: 380 MILLIGRAM, QMO
     Route: 064
     Dates: start: 20211119, end: 20211119
  3. VIVITROL [Suspect]
     Active Substance: NALTREXONE
     Dosage: 380 MILLIGRAM, QMO
     Route: 064
     Dates: start: 20211004, end: 20211004
  4. LEXAPRO [Concomitant]
     Active Substance: ESCITALOPRAM OXALATE
     Indication: Maternal exposure timing unspecified
     Dosage: 20 MILLIGRAM, QD
     Route: 048
  5. UNSPECIFIED INGREDIENT [Concomitant]
     Active Substance: UNSPECIFIED INGREDIENT
     Indication: Maternal exposure timing unspecified
     Route: 065

REACTIONS (2)
  - Intestinal ischaemia [Recovered/Resolved]
  - Foetal exposure during pregnancy [Recovered/Resolved]
